FAERS Safety Report 15120588 (Version 1)
Quarter: 2018Q3

REPORT INFORMATION
  Report Type: Spontaneous
  Country: JP (occurrence: JP)
  Receive Date: 20180709
  Receipt Date: 20180709
  Transmission Date: 20181010
  Serious: Yes (Other)
  Sender: FDA-Public Use
  Company Number: PHJP2018JP013306

PATIENT
  Age: 50 Year
  Sex: Male

DRUGS (2)
  1. PAZOPANIB [Suspect]
     Active Substance: PAZOPANIB
     Indication: RENAL CELL CARCINOMA
     Dosage: UNK
     Route: 065
  2. NIVOLUMAB [Suspect]
     Active Substance: NIVOLUMAB
     Indication: RENAL CELL CARCINOMA
     Dosage: UNK
     Route: 065

REACTIONS (12)
  - Inflammation [Recovering/Resolving]
  - Platelet count decreased [Recovering/Resolving]
  - Generalised oedema [Recovering/Resolving]
  - Rhabdomyolysis [Recovering/Resolving]
  - Infection [Unknown]
  - Pyrexia [Recovering/Resolving]
  - Colitis [Recovering/Resolving]
  - Liver disorder [Recovering/Resolving]
  - Multiple organ dysfunction syndrome [Recovering/Resolving]
  - Pancreatitis [Recovering/Resolving]
  - Decreased appetite [Recovering/Resolving]
  - Rash [Recovering/Resolving]
